FAERS Safety Report 15251100 (Version 2)
Quarter: 2019Q4

REPORT INFORMATION
  Report Type: Report from Study
  Country: US (occurrence: US)
  Receive Date: 20180807
  Receipt Date: 20191226
  Transmission Date: 20200122
  Serious: Yes (Other)
  Sender: FDA-Public Use
  Company Number: PHEH2018US031869

PATIENT
  Sex: Female

DRUGS (1)
  1. ENTRESTO [Suspect]
     Active Substance: SACUBITRIL\VALSARTAN
     Indication: PRODUCT USED FOR UNKNOWN INDICATION
     Dosage: (HAD BEEN ON ENTRESTO FROM 2 YEARS)
     Route: 065

REACTIONS (5)
  - Gastroenteritis viral [Unknown]
  - Rheumatoid arthritis [Unknown]
  - Malaise [Unknown]
  - Feeling abnormal [Unknown]
  - Abdominal discomfort [Unknown]
